FAERS Safety Report 6844609-4 (Version None)
Quarter: 2010Q3

REPORT INFORMATION
  Report Type: 
  Country: None (occurrence: None)
  Receive Date: 20100715
  Receipt Date: 20100702
  Transmission Date: 20110219
  Serious: Yes (Hospitalization)
  Sender: FDA-Public Use
  Company Number: CA-CELGENEUS-028-C5013-10070297

PATIENT
  Sex: Female

DRUGS (5)
  1. CC-5013 [Suspect]
     Indication: MULTIPLE MYELOMA
     Route: 048
     Dates: start: 20100525, end: 20100615
  2. CC-5013 [Suspect]
     Route: 048
     Dates: start: 20090618
  3. DEXAMETHASONE [Suspect]
     Indication: MULTIPLE MYELOMA
     Route: 065
     Dates: start: 20100525, end: 20100621
  4. DEXAMETHASONE [Suspect]
     Route: 065
     Dates: start: 20090618
  5. ASPIRIN [Concomitant]
     Indication: THROMBOSIS PROPHYLAXIS
     Route: 048
     Dates: start: 20090430

REACTIONS (1)
  - ASCITES [None]
